FAERS Safety Report 6661810-3 (Version None)
Quarter: 2010Q1

REPORT INFORMATION
  Report Type: 
  Country: None (occurrence: None)
  Receive Date: 20100331
  Receipt Date: 20090911
  Transmission Date: 20100710
  Serious: No
  Sender: FDA-Public Use
  Company Number: US-BRISTOL-MYERS SQUIBB COMPANY-14701718

PATIENT
  Age: 48 Year
  Sex: Male
  Weight: 98 kg

DRUGS (4)
  1. ERBITUX [Suspect]
     Indication: EPIGLOTTIC CARCINOMA
     Dosage: HELD FOR 2W.2ND INF 4JUN.2ND+FOLLOWING INF 1/2 THAT OF FIRST DOSE.HELD BETW 3#4TH INF.RECIVED 5INF
     Route: 042
     Dates: start: 20090514
  2. RADIATION THERAPY [Concomitant]
     Dates: start: 20090515
  3. STEROIDS [Concomitant]
     Indication: PREMEDICATION
     Route: 042
  4. BENADRYL [Concomitant]
     Indication: PREMEDICATION
     Route: 042

REACTIONS (4)
  - ABDOMINAL PAIN [None]
  - AGEUSIA [None]
  - DERMATITIS ACNEIFORM [None]
  - PAIN OF SKIN [None]
